FAERS Safety Report 7809321-3 (Version None)
Quarter: 2011Q4

REPORT INFORMATION
  Report Type: 
  Country: None (occurrence: None)
  Receive Date: 20111007
  Receipt Date: 20110930
  Transmission Date: 20120403
  Serious: Yes (Hospitalization)
  Sender: FDA-Public Use
  Company Number: 2011SP046419

PATIENT
  Age: 31 Year
  Sex: Female

DRUGS (3)
  1. ZYPREXA [Concomitant]
  2. SAPHRIS [Suspect]
     Indication: SCHIZOAFFECTIVE DISORDER
     Dosage: 10 MG;BID;
     Dates: start: 20110101
  3. SAPHRIS [Suspect]
     Indication: SCHIZOAFFECTIVE DISORDER
     Dosage: 10 MG;BID;
     Dates: start: 20110101

REACTIONS (4)
  - OFF LABEL USE [None]
  - CONDITION AGGRAVATED [None]
  - HYPOAESTHESIA ORAL [None]
  - PSYCHIATRIC SYMPTOM [None]
